FAERS Safety Report 16898929 (Version 1)
Quarter: 2019Q4

REPORT INFORMATION
  Report Type: Spontaneous
  Country: US (occurrence: US)
  Receive Date: 20190815
  Receipt Date: 20190815
  Transmission Date: 20200122
  Serious: Yes (Other)
  Sender: FDA-Public Use
  Company Number: None

PATIENT
  Age: 64 Year
  Sex: Female

DRUGS (1)
  1. OPSUMIT [Suspect]
     Active Substance: MACITENTAN
     Indication: PULMONARY ARTERIAL HYPERTENSION
     Route: 048
     Dates: start: 201901

REACTIONS (5)
  - Joint swelling [None]
  - Fall [None]
  - Weight bearing difficulty [None]
  - Joint injury [None]
  - Arthralgia [None]

NARRATIVE: CASE EVENT DATE: 20190719
